FAERS Safety Report 9450411 (Version 1)
Quarter: 2013Q3

REPORT INFORMATION
  Report Type: Spontaneous
  Country: US (occurrence: US)
  Receive Date: 20130809
  Receipt Date: 20130809
  Transmission Date: 20140515
  Serious: No
  Sender: FDA-Public Use
  Company Number: US-BAYER-2013-096818

PATIENT
  Sex: Male
  Weight: 91 kg

DRUGS (3)
  1. ALEVE CAPLET [Suspect]
     Dosage: 1 DF, BID
     Route: 048
     Dates: start: 2012
  2. ALEVE CAPLET [Suspect]
     Dosage: 2-4 DF, QD
  3. MIRAPEX [Concomitant]

REACTIONS (2)
  - Incorrect drug administration duration [None]
  - Extra dose administered [None]
